FAERS Safety Report 6551934-3 (Version None)
Quarter: 2010Q1

REPORT INFORMATION
  Report Type: 
  Country: None (occurrence: None)
  Receive Date: 20100126
  Receipt Date: 20100118
  Transmission Date: 20100710
  Serious: Yes (Hospitalization)
  Sender: FDA-Public Use
  Company Number: FR-ASTRAZENECA-2010SE02622

PATIENT
  Age: 77 Year
  Sex: Female

DRUGS (6)
  1. CRESTOR [Suspect]
     Indication: HYPERCHOLESTEROLAEMIA
     Route: 048
     Dates: end: 20090901
  2. FURADANTIN [Suspect]
     Route: 048
     Dates: end: 20090901
  3. PARIET [Concomitant]
     Route: 048
  4. LEXOMIL [Concomitant]
     Route: 048
  5. IMOVANE [Concomitant]
     Route: 048
  6. ZARKA [Concomitant]
     Route: 065

REACTIONS (2)
  - HEPATITIS [None]
  - INTERSTITIAL LUNG DISEASE [None]
